FAERS Safety Report 6729278-6 (Version None)
Quarter: 2010Q2

REPORT INFORMATION
  Report Type: 
  Country: None (occurrence: None)
  Receive Date: 20100517
  Receipt Date: 20100503
  Transmission Date: 20101027
  Serious: No
  Sender: FDA-Public Use
  Company Number: US-ABBOTT-10P-163-0641887-00

PATIENT
  Sex: Male
  Weight: 127.12 kg

DRUGS (6)
  1. SIMCOR [Suspect]
     Indication: HIGH DENSITY LIPOPROTEIN DECREASED
     Dosage: 500MG/20MG AT NIGHT
     Route: 048
     Dates: start: 20090501
  2. 3 PILLS FOR DIABETES [Concomitant]
     Indication: DIABETES MELLITUS
     Dosage: TAKEN AS DIRECTED
  3. 2 FOR HIGH BLOOD PRESSURE [Concomitant]
     Indication: HYPERTENSION
     Dosage: TAKEN AS DIRECTED
  4. 2 FOR ANXIETY [Concomitant]
     Indication: ANXIETY
     Dosage: TAKEN AS DIRECTED
  5. ASPIRIN [Concomitant]
     Indication: DRUG USE FOR UNKNOWN INDICATION
     Dosage: 2 WITH SIMCOR AS DIRECTED
  6. GABAPENTIN [Concomitant]
     Indication: DRUG USE FOR UNKNOWN INDICATION
     Dosage: TAKEN AS DIRECTED

REACTIONS (1)
  - FLUSHING [None]
